FAERS Safety Report 8790783 (Version 1)
Quarter: 2012Q4

REPORT INFORMATION
  Report Type: Spontaneous
  Country: US (occurrence: None)
  Receive Date: 20120913
  Receipt Date: 20120913
  Transmission Date: 20130627
  Serious: Yes (Life-Threatening, Hospitalization)
  Sender: FDA-Public Use
  Company Number: None

PATIENT
  Age: 60 Year
  Sex: Female
  Weight: 92.53 kg

DRUGS (1)
  1. TREXIMET [Suspect]
     Indication: MIGRAINE HEADACHE
     Dosage: 1   6 times month swallow
     Dates: start: 20120715

REACTIONS (3)
  - Myocardial infarction [None]
  - Ejection fraction decreased [None]
  - Cardiac disorder [None]
